FAERS Safety Report 8898646 (Version 3)
Quarter: 2014Q3

REPORT INFORMATION
  Report Type: Spontaneous
  Country: US (occurrence: US)
  Receive Date: 20121108
  Receipt Date: 20140904
  Transmission Date: 20150326
  Serious: Yes (Hospitalization, Other)
  Sender: FDA-Public Use
  Company Number: US-009507513-1211USA003738

PATIENT
  Sex: Female

DRUGS (1)
  1. NUVARING [Suspect]
     Active Substance: ETHINYL ESTRADIOL\ETONOGESTREL
     Indication: CONTRACEPTION
     Dosage: UNK
     Route: 067
     Dates: start: 201009

REACTIONS (11)
  - Cerebrovascular accident [Unknown]
  - Escherichia urinary tract infection [Unknown]
  - Hypokalaemia [Unknown]
  - Hyponatraemia [Unknown]
  - Atrial thrombosis [Unknown]
  - Pulmonary embolism [Unknown]
  - Hyperlipidaemia [Unknown]
  - Anaemia [Unknown]
  - Deep vein thrombosis [Unknown]
  - Carotid artery occlusion [Unknown]
  - Type 2 diabetes mellitus [Unknown]

NARRATIVE: CASE EVENT DATE: 201010
